FAERS Safety Report 6231782-4 (Version None)
Quarter: 2009Q2

REPORT INFORMATION
  Report Type: 
  Country: None (occurrence: None)
  Receive Date: 20090616
  Receipt Date: 20090603
  Transmission Date: 20091009
  Serious: Yes (Hospitalization, Other)
  Sender: FDA-Public Use
  Company Number: PHHY2009NZ19514

PATIENT
  Sex: Female

DRUGS (10)
  1. CLOZARIL [Suspect]
     Indication: SCHIZOPHRENIA
     Dosage: 125 MG - 150 MG DAILY
     Dates: start: 20090429, end: 20090518
  2. CLOZARIL [Suspect]
     Indication: PSYCHOTIC DISORDER
  3. VALPROATE SODIUM [Concomitant]
     Indication: BIPOLAR DISORDER
     Dosage: 3500 MG/DAY
     Route: 048
  4. VALPROATE SODIUM [Concomitant]
     Indication: PSYCHOTIC DISORDER
  5. OLANZAPINE [Concomitant]
     Indication: BIPOLAR DISORDER
     Dosage: 20 MG/DAY
     Route: 048
  6. OLANZAPINE [Concomitant]
     Indication: PSYCHOTIC DISORDER
  7. OMEPRAZOLE [Concomitant]
     Dosage: 40 MG/DAY
     Route: 048
  8. FUROSEMIDE [Concomitant]
  9. DIGOXIN [Concomitant]
  10. DILTIAZEM [Concomitant]

REACTIONS (33)
  - ABDOMINAL DISCOMFORT [None]
  - ACTIVATED PARTIAL THROMBOPLASTIN TIME PROLONGED [None]
  - ALANINE AMINOTRANSFERASE INCREASED [None]
  - BLOOD ALBUMIN DECREASED [None]
  - BLOOD BICARBONATE DECREASED [None]
  - BLOOD CALCIUM DECREASED [None]
  - BLOOD CREATINE PHOSPHOKINASE INCREASED [None]
  - BLOOD FIBRINOGEN INCREASED [None]
  - BLOOD MAGNESIUM DECREASED [None]
  - BLOOD PH INCREASED [None]
  - BLOOD PHOSPHORUS DECREASED [None]
  - BLOOD POTASSIUM DECREASED [None]
  - BODY TEMPERATURE FLUCTUATION [None]
  - C-REACTIVE PROTEIN INCREASED [None]
  - CALCIUM IONISED DECREASED [None]
  - CHOLECYSTECTOMY [None]
  - CHOLECYSTITIS [None]
  - CONFUSIONAL STATE [None]
  - HAEMATOCRIT DECREASED [None]
  - HAEMOGLOBIN DECREASED [None]
  - INTERNATIONAL NORMALISED RATIO INCREASED [None]
  - LYMPHOCYTE COUNT DECREASED [None]
  - MALAISE [None]
  - OXYGEN SATURATION DECREASED [None]
  - PCO2 DECREASED [None]
  - PLATELET COUNT DECREASED [None]
  - PO2 DECREASED [None]
  - PSYCHOTIC DISORDER [None]
  - PYREXIA [None]
  - RED BLOOD CELL COUNT DECREASED [None]
  - SCHIZOPHRENIA [None]
  - SEPSIS [None]
  - THROMBIN TIME SHORTENED [None]
